FAERS Safety Report 17803028 (Version 3)
Quarter: 2020Q2

REPORT INFORMATION
  Report Type: Spontaneous
  Country: ES (occurrence: ES)
  Receive Date: 20200519
  Receipt Date: 20200603
  Transmission Date: 20200714
  Serious: Yes (Other)
  Sender: FDA-Public Use
  Company Number: ES-BEH-2020117391

PATIENT
  Age: 51 Year
  Sex: Male

DRUGS (1)
  1. HIZENTRA [Suspect]
     Active Substance: HUMAN IMMUNOGLOBULIN G
     Indication: IMMUNODEFICIENCY COMMON VARIABLE
     Dosage: 16 GRAM / 80 MILLILITER, QW
     Route: 058
     Dates: start: 20191122, end: 20200406

REACTIONS (5)
  - Infusion site pain [Unknown]
  - Infusion site infection [Unknown]
  - Inadequate aseptic technique in use of product [Unknown]
  - Suspected COVID-19 [Unknown]
  - Asthmatic crisis [Unknown]

NARRATIVE: CASE EVENT DATE: 20200312
